FAERS Safety Report 11947493 (Version 3)
Quarter: 2016Q2

REPORT INFORMATION
  Report Type: Report from Study
  Country: US (occurrence: US)
  Receive Date: 20160125
  Receipt Date: 20160421
  Transmission Date: 20160815
  Serious: No
  Sender: FDA-Public Use
  Company Number: US-AMGEN-USASL2015128120

PATIENT
  Age: 73 Year
  Sex: Female

DRUGS (2)
  1. CORTISONE [Concomitant]
     Active Substance: CORTISONE\HYDROCORTISONE
  2. REPATHA [Suspect]
     Active Substance: EVOLOCUMAB
     Indication: HYPERLIPIDAEMIA
     Dosage: 140 MG, Q2WK
     Route: 065
     Dates: start: 20151104

REACTIONS (5)
  - Sinus congestion [Unknown]
  - Erythema [Unknown]
  - Rhinorrhoea [Recovered/Resolved]
  - Arthropathy [Unknown]
  - Headache [Recovered/Resolved]

NARRATIVE: CASE EVENT DATE: 201511
